FAERS Safety Report 5084395-4 (Version None)
Quarter: 2006Q3

REPORT INFORMATION
  Report Type: 
  Country: None (occurrence: None)
  Receive Date: 20060817
  Receipt Date: 20060817
  Transmission Date: 20061208
  Serious: No
  Sender: FDA-Public Use
  Company Number: None

PATIENT
  Sex: Male
  Weight: 227 kg

DRUGS (17)
  1. GABAPENTIN [Suspect]
     Indication: NEUROPATHY PERIPHERAL
     Dosage: 300 MG TID PO
     Route: 048
     Dates: start: 20060101, end: 20060501
  2. GABAPENTIN [Suspect]
     Indication: POLYNEUROPATHY
     Dosage: 300 MG TID PO
     Route: 048
     Dates: start: 20060101, end: 20060501
  3. ALBUTEROL SULFATE AND IPRATROPIUM BROMIDE [Concomitant]
  4. CALCIUM 250MG/VITAMIN D [Concomitant]
  5. DARBEPOETIN ALFA 200MCG/0.4ML SYR W/ALB [Concomitant]
  6. LANOXIN [Concomitant]
  7. DM 10/GUAIFENESN [Concomitant]
  8. DULOXETINE HCL [Concomitant]
  9. FELODIPINE [Concomitant]
  10. FUROSEMIDE [Concomitant]
  11. METOPROLOL TARTRATE [Concomitant]
  12. NITROGLYCERIN -ETHEX- [Concomitant]
  13. RANITIDINE HCL [Concomitant]
  14. SIMVASTATIN [Concomitant]
  15. TERAZOSIN HCL [Concomitant]
  16. VITAMIN E [Concomitant]
  17. COUMADIN [Concomitant]

REACTIONS (3)
  - ABNORMAL DREAMS [None]
  - ANXIETY DISORDER [None]
  - NIGHTMARE [None]
